FAERS Safety Report 6216718-4 (Version None)
Quarter: 2009Q2

REPORT INFORMATION
  Report Type: 
  Country: None (occurrence: None)
  Receive Date: 20090605
  Receipt Date: 20090602
  Transmission Date: 20091009
  Serious: Yes (Death)
  Sender: FDA-Public Use
  Company Number: US-B.I. PHARMACEUTICALS,INC./RIDGEFIELD-2009-BP-06735BP

PATIENT
  Sex: Male

DRUGS (2)
  1. MIRAPEX [Suspect]
     Indication: PARKINSON'S DISEASE
     Route: 048
     Dates: start: 20090101, end: 20090311
  2. SINEMET [Suspect]
     Indication: PARKINSON'S DISEASE
     Dates: start: 19820101

REACTIONS (3)
  - DYSPHAGIA [None]
  - NAUSEA [None]
  - PARKINSON'S DISEASE [None]
